FAERS Safety Report 8415075-2 (Version None)
Quarter: 2012Q2

REPORT INFORMATION
  Report Type: 
  Country: None (occurrence: None)
  Receive Date: 20120530
  Receipt Date: 20120523
  Transmission Date: 20120825
  Serious: Yes (Hospitalization)
  Sender: FDA-Public Use
  Company Number: A0979125A

PATIENT
  Age: 86 Year
  Sex: Female

DRUGS (5)
  1. ISOSORBIDE MONONITRATE [Concomitant]
  2. FUROSEMIDE [Concomitant]
  3. OLMESARTAN MEDOXOMIL [Concomitant]
  4. FLUTICASONE PROPIONATE [Suspect]
     Indication: CHRONIC OBSTRUCTIVE PULMONARY DISEASE
     Dosage: INHALED
     Route: 055
  5. NIFEDIPINE [Concomitant]

REACTIONS (1)
  - SECONDARY ADRENOCORTICAL INSUFFICIENCY [None]
